FAERS Safety Report 9157668 (Version 2)
Quarter: 2013Q1

REPORT INFORMATION
  Report Type: Spontaneous
  Country: JP (occurrence: JP)
  Receive Date: 20130312
  Receipt Date: 20130321
  Transmission Date: 20140127
  Serious: Yes (Hospitalization, Other)
  Sender: FDA-Public Use
  Company Number: PHHY2013JP022514

PATIENT
  Age: 71 Year
  Sex: Female
  Weight: 41 kg

DRUGS (7)
  1. CICLOSPORIN [Suspect]
     Indication: INTERSTITIAL LUNG DISEASE
     Dosage: 120 MG, DAILY
     Route: 048
  2. PREDNISOLONE [Suspect]
     Indication: INTERSTITIAL LUNG DISEASE
     Dosage: 20 MG, UNK
     Route: 048
  3. PREDNISOLONE [Suspect]
     Dosage: 17.5 MG, UNK
     Route: 048
  4. PACLITAXEL [Suspect]
     Indication: OVARIAN CANCER STAGE III
     Dosage: 80 MG/M2, UNK
  5. PACLITAXEL [Suspect]
     Dosage: 70 MG/M2, UNK
  6. CARBOPLATIN [Suspect]
     Indication: OVARIAN CANCER STAGE III
     Dosage: AUC 6
  7. CARBOPLATIN [Suspect]
     Dosage: AUC 5

REACTIONS (3)
  - Pneumonia cytomegaloviral [Recovering/Resolving]
  - Malaise [Recovering/Resolving]
  - Decreased appetite [Recovering/Resolving]
